FAERS Safety Report 7236185-1 (Version None)
Quarter: 2011Q1

REPORT INFORMATION
  Report Type: 
  Country: None (occurrence: None)
  Receive Date: 20110120
  Receipt Date: 20110114
  Transmission Date: 20110831
  Serious: Yes (Death, Disabling, Other)
  Sender: FDA-Public Use
  Company Number: JP-PFIZER INC-2010179237

PATIENT
  Age: 67 Year
  Sex: Male
  Weight: 46.4 kg

DRUGS (15)
  1. NOVAMIN [Concomitant]
     Indication: PROPHYLAXIS
     Dosage: UNK
     Route: 048
     Dates: start: 20101201, end: 20101209
  2. FERROUS CITRATE [Concomitant]
     Dosage: 100 MG, 1X/DAY
     Route: 048
  3. MUCOSTA [Concomitant]
     Indication: PROPHYLAXIS
     Dosage: UNK
     Route: 048
  4. TEMSIROLIMUS [Suspect]
     Indication: METASTATIC RENAL CELL CARCINOMA
     Dosage: 25 MG, WEEKLY
     Route: 042
     Dates: start: 20101129, end: 20101213
  5. ADALAT CC [Concomitant]
     Dosage: 40 MG, 1X/DAY
     Route: 048
     Dates: end: 20101212
  6. RESTAMIN [Concomitant]
     Indication: PROPHYLAXIS OF NAUSEA AND VOMITING
     Dosage: 50 MG, 1X/DAY
     Route: 048
  7. TAMSULOSIN HCL [Concomitant]
     Dosage: 0.2 MG, 1X/DAY
     Route: 048
  8. PREGABALIN [Concomitant]
     Dosage: 75 MG, 1X/DAY
     Route: 048
     Dates: end: 20101212
  9. FLUITRAN [Concomitant]
     Dosage: 1 MG, 1X/DAY
     Route: 048
     Dates: end: 20101209
  10. MENESIT [Concomitant]
     Dosage: UNK
     Route: 048
  11. LOXONIN [Concomitant]
     Dosage: UNK
     Route: 048
     Dates: end: 20101213
  12. SENNOSIDES [Concomitant]
     Dosage: 36 MG, 1X/DAY
     Route: 048
  13. OXYCONTIN [Concomitant]
     Dosage: UNK
     Route: 048
     Dates: start: 20101201, end: 20101214
  14. BLOPRESS [Concomitant]
     Dosage: 8 MG, 1X/DAY
     Route: 048
  15. OXYCODONE HCL [Concomitant]
     Dosage: UNK
     Route: 048
     Dates: start: 20101201

REACTIONS (3)
  - DYSGEUSIA [None]
  - DEATH [None]
  - STOMATITIS [None]
